FAERS Safety Report 9014693 (Version 1)
Quarter: 2013Q1

REPORT INFORMATION
  Report Type: Spontaneous
  Country: NO (occurrence: NO)
  Receive Date: 20130115
  Receipt Date: 20130115
  Transmission Date: 20140127
  Serious: Yes (Hospitalization)
  Sender: FDA-Public Use
  Company Number: NO-009507513-1301NOR006278

PATIENT
  Age: 75 Year
  Sex: Female

DRUGS (2)
  1. FOSAMAX [Suspect]
     Indication: OSTEOPOROSIS
     Route: 048
     Dates: start: 1998, end: 201109
  2. CALCIGRAN FORTE [Concomitant]
     Indication: OSTEOPOROSIS
     Dosage: 1 DF = 1000 MG CALCIUM AND 800 IU VITAMIN D3
     Route: 048
     Dates: start: 1998

REACTIONS (1)
  - Pathological fracture [Recovered/Resolved with Sequelae]
